FAERS Safety Report 6715481-8 (Version None)
Quarter: 2010Q2

REPORT INFORMATION
  Report Type: 
  Country: None (occurrence: None)
  Receive Date: 20100506
  Receipt Date: 20100506
  Transmission Date: 20101027
  Serious: Yes (Hospitalization)
  Sender: FDA-Public Use
  Company Number: None

PATIENT
  Age: 36 Year
  Sex: Female
  Weight: 141 kg

DRUGS (2)
  1. AMITRIPTLINE HYDROCHLORIDE TAB [Suspect]
     Indication: SUICIDE ATTEMPT
     Dosage: 1250MG ONCE PO
     Route: 048
     Dates: start: 20100214
  2. OXYCODONE HCL AND ACETAMINOPHEN [Concomitant]

REACTIONS (11)
  - AGITATION [None]
  - ANXIETY [None]
  - DRUG WITHDRAWAL SYNDROME [None]
  - HALLUCINATION, TACTILE [None]
  - HALLUCINATIONS, MIXED [None]
  - HEADACHE [None]
  - INCORRECT DOSE ADMINISTERED [None]
  - NAUSEA [None]
  - SOMNOLENCE [None]
  - SUICIDE ATTEMPT [None]
  - TREMOR [None]
